FAERS Safety Report 6725958-7 (Version None)
Quarter: 2010Q2

REPORT INFORMATION
  Report Type: 
  Country: None (occurrence: None)
  Receive Date: 20100514
  Receipt Date: 20060522
  Transmission Date: 20101027
  Serious: Yes (Other)
  Sender: FDA-Public Use
  Company Number: PHHY2006BR02592

PATIENT
  Sex: Male
  Weight: 72 kg

DRUGS (8)
  1. DIOVAN [Suspect]
     Indication: HYPERTENSION
     Dosage: 160 MG, QD
     Route: 048
  2. ASPIRIN [Concomitant]
     Indication: BLOOD DISORDER
     Dosage: ONCE DAILY AFTER LUNCH
     Route: 048
     Dates: start: 20030101
  3. OMEPRAZOLE [Concomitant]
     Indication: GASTRIC DISORDER
     Dosage: ONCE DAILY IN MORNING
     Route: 048
     Dates: start: 20050101
  4. ANCORON [Concomitant]
     Indication: CARDIAC DISORDER
     Dosage: ONCE DAILY IN MORNING
     Route: 048
     Dates: start: 20050101
  5. MAGNESIUM SULFATE [Concomitant]
     Dosage: UNK
     Route: 048
     Dates: start: 20050201
  6. SIMVASTATIN [Concomitant]
     Indication: INFARCTION
     Dosage: ONCE AT NIGHT
     Route: 048
  7. BAMIFIX [Concomitant]
     Indication: LUNG DISORDER
     Dosage: ONCE AT NIGHT
     Route: 048
     Dates: start: 20060501
  8. GINKGO BILOBA [Concomitant]
     Dosage: ONCE IN MORNING
     Route: 048
     Dates: start: 20060301

REACTIONS (2)
  - DIZZINESS [None]
  - VISUAL IMPAIRMENT [None]
